FAERS Safety Report 9062782 (Version 1)
Quarter: 2013Q1

REPORT INFORMATION
  Report Type: Spontaneous
  Country: US (occurrence: US)
  Receive Date: 20130213
  Receipt Date: 20130213
  Transmission Date: 20140127
  Serious: Yes (Hospitalization)
  Sender: FDA-Public Use
  Company Number: US-ABBOTT-13P-163-1045953-00

PATIENT
  Age: 49 None
  Sex: Male
  Weight: 90.35 kg

DRUGS (9)
  1. ANDROGEL [Suspect]
     Indication: BLOOD TESTOSTERONE DECREASED
     Dosage: 2 PUMP ACTUATIONS
     Dates: start: 20121206, end: 20121218
  2. GLIPIZIDE XL [Concomitant]
     Indication: DIABETES MELLITUS
  3. VICTOZA [Concomitant]
     Indication: DIABETES MELLITUS
  4. SIMVASTATIN [Concomitant]
     Indication: HYPERLIPIDAEMIA
  5. CIALIS [Concomitant]
     Indication: ERECTILE DYSFUNCTION
  6. LISINOPRIL [Concomitant]
     Indication: RENAL DISORDER
  7. METFORMIN ER [Concomitant]
     Indication: DIABETES MELLITUS
  8. FENOFIBRATE [Concomitant]
     Indication: BLOOD CHOLESTEROL INCREASED
  9. LOW DOSE ASPIRIN [Concomitant]
     Indication: CARDIAC DISORDER

REACTIONS (10)
  - Chromaturia [Recovering/Resolving]
  - Hepatitis [Recovering/Resolving]
  - Vomiting [Recovered/Resolved]
  - Jaundice [Recovering/Resolving]
  - Pain [Recovering/Resolving]
  - Diarrhoea [Recovering/Resolving]
  - Blood bilirubin increased [Recovering/Resolving]
  - Hepatosplenomegaly [Recovering/Resolving]
  - Pruritus [Recovered/Resolved]
  - Liver function test abnormal [Recovering/Resolving]
